FAERS Safety Report 15552004 (Version 2)
Quarter: 2018Q4

REPORT INFORMATION
  Report Type: Spontaneous
  Country: IT (occurrence: IT)
  Receive Date: 20181025
  Receipt Date: 20181128
  Transmission Date: 20190205
  Serious: Yes (Hospitalization)
  Sender: FDA-Public Use
  Company Number: IT-TEVA-2018-IT-968397

PATIENT
  Age: 91 Year
  Sex: Female

DRUGS (6)
  1. ZOCOR [Concomitant]
     Active Substance: SIMVASTATIN
     Route: 065
  2. CIPROFLOXACIN. [Concomitant]
     Active Substance: CIPROFLOXACIN
     Route: 065
  3. NORVASC [Concomitant]
     Active Substance: AMLODIPINE BESYLATE
     Route: 064
  4. SERTRALINE [Suspect]
     Active Substance: SERTRALINE HYDROCHLORIDE
     Indication: ANXIETY
     Dosage: 1 DOSAGE FORMS DAILY;
     Route: 048
     Dates: start: 20180711, end: 20180716
  5. DEURSIL [Concomitant]
     Active Substance: URSODIOL
     Route: 065
  6. MOVICOL [Concomitant]
     Active Substance: POLYETHYLENE GLYCOL 3350\POTASSIUM CHLORIDE\SODIUM BICARBONATE\SODIUM CHLORIDE
     Route: 065

REACTIONS (2)
  - Hyponatraemia [Unknown]
  - Urinary retention [Unknown]

NARRATIVE: CASE EVENT DATE: 20180716
